FAERS Safety Report 15248299 (Version 1)
Quarter: 2018Q3

REPORT INFORMATION
  Report Type: Spontaneous
  Country: US (occurrence: US)
  Receive Date: 20180807
  Receipt Date: 20180807
  Transmission Date: 20181010
  Serious: No
  Sender: FDA-Public Use
  Company Number: US-BAYER-2018-143672

PATIENT
  Age: 46 Year
  Sex: Female
  Weight: 68.98 kg

DRUGS (3)
  1. ZOFRAN [Concomitant]
     Active Substance: ONDANSETRON HYDROCHLORIDE
     Indication: PROPHYLAXIS
  2. MAALOX [CALCIUM CARBONATE] [Concomitant]
     Indication: PROPHYLAXIS
     Dosage: UNK
  3. MIRALAX [Suspect]
     Active Substance: POLYETHYLENE GLYCOL 3350
     Indication: PROPHYLAXIS
     Route: 048
     Dates: start: 20180726, end: 20180726

REACTIONS (8)
  - Wrong technique in product usage process [Unknown]
  - Diarrhoea [Not Recovered/Not Resolved]
  - Off label use [None]
  - Tachycardia [Recovered/Resolved]
  - Dizziness [Recovering/Resolving]
  - Product use in unapproved indication [Unknown]
  - Hyponatraemia [Unknown]
  - Product prescribing issue [Unknown]

NARRATIVE: CASE EVENT DATE: 20180726
